FAERS Safety Report 10258044 (Version 1)
Quarter: 2014Q2

REPORT INFORMATION
  Report Type: Spontaneous
  Country: US (occurrence: None)
  Receive Date: 20140623
  Receipt Date: 20140623
  Transmission Date: 20141212
  Serious: Yes (Disabling)
  Sender: FDA-Public Use
  Company Number: None

PATIENT
  Age: 48 Year
  Sex: Female
  Weight: 117.94 kg

DRUGS (3)
  1. LEVAQUIN [Suspect]
     Indication: OROPHARYNGEAL PAIN
     Dosage: 1 PILL ONCE DAILY TAKEN BY MOUTH
     Route: 048
     Dates: start: 20120202, end: 20120207
  2. LEVAQUIN [Suspect]
     Indication: PULMONARY CONGESTION
     Dosage: 1 PILL ONCE DAILY TAKEN BY MOUTH
     Route: 048
     Dates: start: 20120202, end: 20120207
  3. LEVAQUIN [Suspect]
     Indication: COUGH
     Dosage: 1 PILL ONCE DAILY TAKEN BY MOUTH
     Route: 048
     Dates: start: 20120202, end: 20120207

REACTIONS (4)
  - Fall [None]
  - Musculoskeletal pain [None]
  - Tendon pain [None]
  - Tendonitis [None]
